FAERS Safety Report 14331440 (Version 9)
Quarter: 2023Q2

REPORT INFORMATION
  Report Type: Report from Study
  Country: US (occurrence: None)
  Receive Date: 20171228
  Receipt Date: 20230526
  Transmission Date: 20230722
  Serious: Yes (Hospitalization, Other)
  Sender: FDA-Public Use
  Company Number: US-ROCHE-2020625

PATIENT
  Age: 79 Year
  Sex: Male
  Weight: 80.3 kg

DRUGS (49)
  1. COBIMETINIB [Suspect]
     Active Substance: COBIMETINIB
     Indication: Rosai-Dorfman syndrome
     Route: 048
     Dates: start: 20170224
  2. COBIMETINIB [Suspect]
     Active Substance: COBIMETINIB
     Route: 048
     Dates: start: 20170616, end: 20180719
  3. DOCUSATE SODIUM [Concomitant]
     Active Substance: DOCUSATE SODIUM
     Route: 048
  4. SENNA [Concomitant]
     Active Substance: SENNA LEAF\SENNOSIDES\SENNOSIDES A AND B
     Dosage: 2 TABLETS
     Route: 048
  5. ENOXAPARIN SODIUM [Concomitant]
     Active Substance: ENOXAPARIN SODIUM
     Route: 058
  6. ASPIRIN [Concomitant]
     Active Substance: ASPIRIN
  7. OXYCONTIN [Concomitant]
     Active Substance: OXYCODONE HYDROCHLORIDE
  8. OXYCONTIN [Concomitant]
     Active Substance: OXYCODONE HYDROCHLORIDE
  9. TAMSULOSIN [Concomitant]
     Active Substance: TAMSULOSIN
  10. PREGABALIN [Concomitant]
     Active Substance: PREGABALIN
  11. RANITIDINE HYDROCHLORIDE [Concomitant]
     Active Substance: RANITIDINE HYDROCHLORIDE
  12. FERROUS SULFATE [Concomitant]
     Active Substance: FERROUS SULFATE
  13. FERROUS SULFATE [Concomitant]
     Active Substance: FERROUS SULFATE
     Dosage: 65 MG ELEMENTAL IRON
  14. POLYETHYLENE GLYCOL 3350 [Concomitant]
     Active Substance: POLYETHYLENE GLYCOL 3350
     Route: 048
  15. OXYBUTYNIN [Concomitant]
     Active Substance: OXYBUTYNIN
  16. NALOXEGOL [Concomitant]
     Active Substance: NALOXEGOL
  17. ATORVASTATIN [Concomitant]
     Active Substance: ATORVASTATIN
     Dosage: BEDTIME
     Route: 048
  18. METOPROLOLTARTRAT [Concomitant]
     Dosage: IMMEDIATE RELEASE
  19. METOPROLOLTARTRAT [Concomitant]
  20. CLOPIDOGREL [Concomitant]
     Active Substance: CLOPIDOGREL BISULFATE
  21. DIPHENHYDRAMINE [Concomitant]
     Active Substance: DIPHENHYDRAMINE
     Dosage: ONCE
  22. ACLOVATE [Concomitant]
     Active Substance: ALCLOMETASONE DIPROPIONATE
  23. ALFUZOSIN [Concomitant]
     Active Substance: ALFUZOSIN
  24. COD LIVER OIL [Concomitant]
     Active Substance: COD LIVER OIL
     Dosage: UNKNOWN
  25. GAS-X [Concomitant]
     Active Substance: DIMETHICONE
  26. HYDROMORPHONE [Concomitant]
     Active Substance: HYDROMORPHONE
     Dosage: 1-2 TABS
  27. PROTONIX [Concomitant]
     Active Substance: PANTOPRAZOLE SODIUM
     Dosage: 2-TABS
     Route: 048
  28. VITAMIN B COMPLEX [Concomitant]
     Active Substance: CYANOCOBALAMIN\DEXPANTHENOL\NIACINAMIDE\PYRIDOXINE HYDROCHLORIDE\RIBOFLAVIN 5^-PHOSPHATE SODIUM\THIA
  29. LIDOCAINE [Concomitant]
     Active Substance: LIDOCAINE
     Dosage: AS NEEDED
     Route: 061
  30. MEROPENEM [Concomitant]
     Active Substance: MEROPENEM
     Route: 042
  31. COENZYME Q-10;SODIUM CHLORIDE [Concomitant]
     Dosage: UNKNOWN
  32. DOCUSATE SODIUM [Concomitant]
     Active Substance: DOCUSATE SODIUM
     Route: 048
  33. DOCUSATE SODIUM [Concomitant]
     Active Substance: DOCUSATE SODIUM
  34. FUROSEMIDE [Concomitant]
     Active Substance: FUROSEMIDE
  35. FUROSEMIDE [Concomitant]
     Active Substance: FUROSEMIDE
  36. METHADONE [Concomitant]
     Active Substance: METHADONE HYDROCHLORIDE
     Dosage: C-II
     Route: 048
  37. METHADONE [Concomitant]
     Active Substance: METHADONE HYDROCHLORIDE
  38. MIDODRINE [Concomitant]
     Active Substance: MIDODRINE
     Route: 048
  39. OXYCODONE [Concomitant]
     Active Substance: OXYCODONE
     Dosage: C-II
  40. OXYCODONE [Concomitant]
     Active Substance: OXYCODONE
     Dosage: TABLET 1 TO 3 EVERY 3 HOURS AS NEEDED
  41. PANTOPRAZOLE [Concomitant]
     Active Substance: PANTOPRAZOLE
     Route: 048
  42. SIMETHICONE (DIMETHICONE) [Concomitant]
     Active Substance: DIMETHICONE
     Dosage: AS NEEDED
  43. SIMETHICONE (DIMETHICONE) [Concomitant]
     Active Substance: DIMETHICONE
     Dosage: EVERY 8 HOURS AS NEEDED
     Route: 048
  44. ACETAMINOPHEN [Concomitant]
     Active Substance: ACETAMINOPHEN
     Dosage: 3 TABLETS EVERY 8 HOURS
  45. RANITIDINE [Concomitant]
     Active Substance: RANITIDINE
     Dosage: 2 TABLETS AT BETIME
     Route: 048
  46. MIRALAX [Concomitant]
     Active Substance: POLYETHYLENE GLYCOL 3350
     Dosage: AS NEEDED?POWDER FOR RECONSTITUTION 1 DOSE
     Route: 048
  47. ARANESP [Concomitant]
     Active Substance: DARBEPOETIN ALFA
     Dosage: 200 MCG/ML
  48. KLOR-CON M20 [Concomitant]
     Active Substance: POTASSIUM CHLORIDE
     Route: 048
  49. CELECOXIB [Concomitant]
     Active Substance: CELECOXIB

REACTIONS (20)
  - Infection [Unknown]
  - Myocardial ischaemia [Unknown]
  - Systemic infection [Unknown]
  - Pain [Unknown]
  - Urinary tract infection [Unknown]
  - Dyspnoea [Unknown]
  - Hypotension [Unknown]
  - Pyrexia [Unknown]
  - Asthenia [Unknown]
  - Escherichia sepsis [Unknown]
  - Bacteraemia [Unknown]
  - Nausea [Unknown]
  - Abdominal pain [Unknown]
  - Myocardial infarction [Unknown]
  - Constipation [Unknown]
  - Myelodysplastic syndrome with excess blasts [Unknown]
  - Ejection fraction decreased [Unknown]
  - Anaemia [Unknown]
  - Neck pain [Unknown]
  - Platelet count decreased [Unknown]

NARRATIVE: CASE EVENT DATE: 20171003
